FAERS Safety Report 10271165 (Version 1)
Quarter: 2014Q3

REPORT INFORMATION
  Report Type: Spontaneous
  Country: GB (occurrence: GB)
  Receive Date: 20140701
  Receipt Date: 20140701
  Transmission Date: 20150326
  Serious: Yes (Other)
  Sender: FDA-Public Use
  Company Number: GB-ACTAVISPR-2014-14107

PATIENT
  Age: 88 Year
  Sex: Male

DRUGS (4)
  1. MEROPENEM (UNKNOWN) [Suspect]
     Active Substance: MEROPENEM
     Indication: ENTEROBACTER INFECTION
  2. CIPROFLOXACIN HYDROCHLORIDE (UNKNOWN) [Suspect]
     Active Substance: CIPROFLOXACIN HYDROCHLORIDE
     Indication: OSTEOMYELITIS BACTERIAL
     Dosage: UNK, LONG TERM
     Route: 065
  3. CIPROFLOXACIN HYDROCHLORIDE (UNKNOWN) [Suspect]
     Active Substance: CIPROFLOXACIN HYDROCHLORIDE
     Indication: ENTEROBACTER INFECTION
  4. MEROPENEM (UNKNOWN) [Suspect]
     Active Substance: MEROPENEM
     Indication: OSTEOMYELITIS BACTERIAL
     Dosage: UNK
     Route: 042

REACTIONS (3)
  - Treatment failure [Unknown]
  - Pathogen resistance [Unknown]
  - Enterobacter infection [Unknown]
